FAERS Safety Report 6193960-2 (Version None)
Quarter: 2009Q2

REPORT INFORMATION
  Report Type: 
  Country: None (occurrence: None)
  Receive Date: 20090518
  Receipt Date: 20090508
  Transmission Date: 20091009
  Serious: Yes (Other)
  Sender: FDA-Public Use
  Company Number: PHHY2009JP15354

PATIENT
  Sex: Female

DRUGS (1)
  1. NEORAL [Suspect]
     Indication: DERMATITIS ATOPIC
     Dosage: UNK
     Route: 048
     Dates: start: 20090101

REACTIONS (11)
  - ANOREXIA [None]
  - BLOOD IMMUNOGLOBULIN E INCREASED [None]
  - BLOOD LACTATE DEHYDROGENASE INCREASED [None]
  - DERMATITIS EXFOLIATIVE [None]
  - EOSINOPHIL COUNT INCREASED [None]
  - FATIGUE [None]
  - LYMPHOCYTE COUNT DECREASED [None]
  - PAIN OF SKIN [None]
  - PRURITUS [None]
  - PYREXIA [None]
  - RASH GENERALISED [None]
